FAERS Safety Report 4441490-8 (Version None)
Quarter: 2004Q3

REPORT INFORMATION
  Report Type: 
  Country: None (occurrence: None)
  Receive Date: 20040728
  Receipt Date: 20040506
  Transmission Date: 20050211
  Serious: No
  Sender: FDA-Public Use
  Company Number: USA040566931

PATIENT
  Age: 46 Year
  Sex: Female
  Weight: 70 kg

DRUGS (2)
  1. STRATTERA [Suspect]
     Indication: ATTENTION DEFICIT/HYPERACTIVITY DISORDER
     Dosage: 40 MG DAY
     Dates: start: 20040429
  2. PRENATAL VITAMINS [Concomitant]

REACTIONS (1)
  - DYSMENORRHOEA [None]
